FAERS Safety Report 7801805-7 (Version None)
Quarter: 2011Q4

REPORT INFORMATION
  Report Type: 
  Country: None (occurrence: None)
  Receive Date: 20111005
  Receipt Date: 20110927
  Transmission Date: 20120403
  Serious: Yes (Hospitalization)
  Sender: FDA-Public Use
  Company Number: 2011MA014585

PATIENT
  Age: 95 Year
  Sex: Female

DRUGS (7)
  1. CORACTEN XL [Concomitant]
  2. SIMVASTATIN [Concomitant]
  3. ASPIRIN [Concomitant]
  4. CLOPIDOGREL [Concomitant]
  5. RAMIPRIL [Suspect]
     Indication: MYOCARDIAL INFARCTION
     Dosage: 2.5 MG;QD;PO
     Route: 048
     Dates: start: 20110517, end: 20110827
  6. GLYCERYL TRINITRATE [Concomitant]
  7. RANITIDINE [Concomitant]

REACTIONS (2)
  - HYPERKALAEMIA [None]
  - RENAL FAILURE ACUTE [None]
